FAERS Safety Report 5093769-7 (Version None)
Quarter: 2006Q3

REPORT INFORMATION
  Report Type: 
  Country: None (occurrence: None)
  Receive Date: 20060728
  Receipt Date: 20060427
  Transmission Date: 20061208
  Serious: No
  Sender: FDA-Public Use
  Company Number: 252910

PATIENT
  Age: 57 Year
  Sex: Male
  Weight: 95.2 kg

DRUGS (6)
  1. LEVEMIR [Suspect]
     Indication: INSULIN-REQUIRING TYPE II DIABETES MELLITUS
     Dosage: 15 IU, QD, SUBCUTANEOUS
     Route: 058
     Dates: start: 20060427
  2. AMARYL [Concomitant]
  3. GLUCOPHAGE (METFORMIN) TABLET [Concomitant]
  4. ACTOS [Concomitant]
  5. ACCUPRIL [Concomitant]
  6. BYETTA [Concomitant]

REACTIONS (1)
  - BLOOD GLUCOSE INCREASED [None]
